FAERS Safety Report 22044660 (Version 2)
Quarter: 2023Q2

REPORT INFORMATION
  Report Type: Spontaneous
  Country: CA (occurrence: CA)
  Receive Date: 20230228
  Receipt Date: 20230607
  Transmission Date: 20230722
  Serious: Yes (Other)
  Sender: FDA-Public Use
  Company Number: CA-PFIZER INC-202200718652

PATIENT
  Age: 5 Year
  Sex: Female

DRUGS (3)
  1. GENOTROPIN [Suspect]
     Active Substance: SOMATROPIN
     Dosage: 0.40 MG/DAY ALTERNATING WITH 0.6 MG, 6 DAYS/WEEK
     Route: 058
     Dates: start: 20220705, end: 2022
  2. GENOTROPIN [Suspect]
     Active Substance: SOMATROPIN
     Dosage: 600 UG (0.25 ML), SIX TIMES PER WEEK FOR 90 DAYS
     Route: 058
     Dates: start: 2022, end: 2023
  3. GENOTROPIN [Suspect]
     Active Substance: SOMATROPIN
     Dosage: 0.6 MG, ALTERNATING WITH 0.8 MG, 6 TIMES WEEKLY
     Dates: start: 2023

REACTIONS (2)
  - Syncope [Unknown]
  - Off label use [Unknown]

NARRATIVE: CASE EVENT DATE: 20220705
